FAERS Safety Report 4367311-X (Version None)
Quarter: 2004Q2

REPORT INFORMATION
  Report Type: 
  Country: None (occurrence: None)
  Receive Date: 20040524
  Receipt Date: 20040510
  Transmission Date: 20050107
  Serious: Yes (Death, Other)
  Sender: FDA-Public Use
  Company Number: 2004-NL-00063NL

PATIENT
  Age: 82 Year
  Sex: Male

DRUGS (1)
  1. SPIRIVA [Suspect]
     Indication: CHRONIC OBSTRUCTIVE AIRWAYS DISEASE
     Dosage: 18 MCG,
     Route: 055

REACTIONS (2)
  - LUNG NEOPLASM MALIGNANT [None]
  - VISUAL DISTURBANCE [None]
